FAERS Safety Report 16010620 (Version 1)
Quarter: 2019Q1

REPORT INFORMATION
  Report Type: Spontaneous
  Country: AU (occurrence: AU)
  Receive Date: 20190227
  Receipt Date: 20190227
  Transmission Date: 20190418
  Serious: Yes (Other)
  Sender: FDA-Public Use
  Company Number: AU-TEVA-2019-AU-1018419

PATIENT
  Age: 43 Year
  Sex: Male

DRUGS (1)
  1. ARIPIPRAZOLE. [Suspect]
     Active Substance: ARIPIPRAZOLE
     Dosage: DOSAGE UNKNOWN
     Route: 065

REACTIONS (8)
  - Abnormal behaviour [Unknown]
  - Hypoalbuminaemia [Unknown]
  - Hypotension [Unknown]
  - Hypothermia [Unknown]
  - Lethargy [Unknown]
  - Malaise [Unknown]
  - Bradycardia [Unknown]
  - Diarrhoea [Unknown]
